FAERS Safety Report 10881365 (Version 1)
Quarter: 2015Q1

REPORT INFORMATION
  Report Type: Spontaneous
  Country: BR (occurrence: BR)
  Receive Date: 20150303
  Receipt Date: 20150303
  Transmission Date: 20150721
  Serious: Yes (Hospitalization)
  Sender: FDA-Public Use
  Company Number: PHHY2015BR024589

PATIENT
  Age: 91 Year
  Sex: Male

DRUGS (1)
  1. EXELON PATCH [Suspect]
     Active Substance: RIVASTIGMINE
     Indication: PRODUCT USED FOR UNKNOWN INDICATION
     Dosage: 9.5 MG (PATCH 10CM2), UNK
     Route: 062

REACTIONS (8)
  - Insomnia [Unknown]
  - Decreased appetite [Unknown]
  - Dementia [Unknown]
  - Dyspnoea [Unknown]
  - Delirium [Unknown]
  - Malaise [Unknown]
  - Diarrhoea [Unknown]
  - Confusional state [Unknown]
